FAERS Safety Report 4444084-3 (Version None)
Quarter: 2004Q3

REPORT INFORMATION
  Report Type: 
  Country: None (occurrence: None)
  Receive Date: 20040729
  Receipt Date: 20040322
  Transmission Date: 20050211
  Serious: Yes (Other)
  Sender: FDA-Public Use
  Company Number: US-JNJFOC-20040100444

PATIENT
  Age: 45 Year
  Sex: Female

DRUGS (3)
  1. RISPERDAL [Suspect]
     Indication: SCHIZOPHRENIA
     Dosage: 4 MG, 1 IN 1 DAY, ORAL; 0.5 MG, ORAL
     Route: 048
     Dates: start: 20020101
  2. RISPERDAL [Suspect]
     Indication: SCHIZOPHRENIA
     Dosage: 4 MG, 1 IN 1 DAY, ORAL; 0.5 MG, ORAL
     Route: 048
     Dates: start: 20030801
  3. PHENOBARBITAL TAB [Concomitant]

REACTIONS (1)
  - CONVULSION [None]
